FAERS Safety Report 7551491-9 (Version None)
Quarter: 2011Q2

REPORT INFORMATION
  Report Type: 
  Country: None (occurrence: None)
  Receive Date: 20110616
  Receipt Date: 20110602
  Transmission Date: 20111010
  Serious: Yes (Hospitalization, Other)
  Sender: FDA-Public Use
  Company Number: US-ELI_LILLY_AND_COMPANY-US201106002071

PATIENT
  Sex: Female

DRUGS (20)
  1. MAGNESIUM OXIDE [Concomitant]
     Dosage: UNK UNK, QD
  2. SYNTHROID [Concomitant]
     Dosage: 25 UG, QD
  3. NORVASC [Concomitant]
     Dosage: 5 MG, QD
  4. ASCORBIC ACID [Concomitant]
     Dosage: 1000 MG, QD
  5. GLUCOSAMINE CHONDROITIN [Concomitant]
     Dosage: 1 DF, QD
  6. VITAMIN B-12 [Concomitant]
     Dosage: 1 DF, MONTHLY (1/M)
  7. SENOKOT [Concomitant]
     Dosage: UNK, QD
  8. LOTENSIN [Concomitant]
     Dosage: 10 MG, QD
  9. CENTURY [Concomitant]
     Dosage: 1 DF, QD
  10. ASPIRIN [Concomitant]
     Dosage: 81 MG, QD
  11. ANTIBIOTICS [Concomitant]
  12. REMERON [Concomitant]
     Dosage: 15 MG, QD
  13. VITAMIN E [Concomitant]
     Dosage: 400 MG, QD
  14. KEFLEX [Concomitant]
     Dosage: 500 MG, UNK
  15. FORTEO [Suspect]
     Indication: OSTEOPOROSIS
     Dosage: 20 UG, QD
     Dates: start: 20101122
  16. FERROUS SULFATE TAB [Concomitant]
     Dosage: 2 DF, QD
  17. LIDODERM [Concomitant]
     Dosage: 5 DF, QD
  18. NORCO [Concomitant]
     Dosage: UNK, QD
  19. FISH OIL [Concomitant]
     Dosage: 1000 MG, QD
  20. CALCIUM CARBONATE [Concomitant]
     Dosage: 1200 MG, BID

REACTIONS (11)
  - FEELING ABNORMAL [None]
  - ARTHRALGIA [None]
  - ABASIA [None]
  - URINARY TRACT INFECTION [None]
  - PULSE PRESSURE DECREASED [None]
  - HEART RATE DECREASED [None]
  - HEART RATE IRREGULAR [None]
  - PALLOR [None]
  - PRESYNCOPE [None]
  - LOSS OF CONSCIOUSNESS [None]
  - HAEMATOMA [None]
